FAERS Safety Report 21412609 (Version 1)
Quarter: 2022Q4

REPORT INFORMATION
  Report Type: Spontaneous
  Country: US (occurrence: US)
  Receive Date: 20221005
  Receipt Date: 20221005
  Transmission Date: 20230113
  Serious: No
  Sender: FDA-Public Use
  Company Number: US-ELI_LILLY_AND_COMPANY-US202209006539

PATIENT
  Sex: Female

DRUGS (1)
  1. BEBTELOVIMAB [Suspect]
     Active Substance: BEBTELOVIMAB
     Indication: COVID-19
     Dosage: 175 MG, SINGLE
     Dates: start: 2022

REACTIONS (6)
  - Dry mouth [Unknown]
  - Alopecia [Unknown]
  - Visual impairment [Unknown]
  - Fatigue [Unknown]
  - Decreased appetite [Unknown]
  - Malaise [Unknown]
